FAERS Safety Report 16589161 (Version 1)
Quarter: 2019Q3

REPORT INFORMATION
  Report Type: Spontaneous
  Country: DE (occurrence: DE)
  Receive Date: 20190718
  Receipt Date: 20190718
  Transmission Date: 20191004
  Serious: Yes (Hospitalization, Other)
  Sender: FDA-Public Use
  Company Number: DE-AMGEN-DEUSP2019109653

PATIENT
  Age: 56 Year
  Sex: Female

DRUGS (6)
  1. ZOMETA [Concomitant]
     Active Substance: ZOLEDRONIC ACID
     Dosage: 4 MILLIGRAM
     Dates: start: 20130212
  2. XGEVA [Suspect]
     Active Substance: DENOSUMAB
     Indication: METASTASES TO BONE
     Dosage: 120 MILLIGRAM, QMO
     Route: 058
     Dates: start: 201305
  3. LETROZOLE. [Concomitant]
     Active Substance: LETROZOLE
     Indication: BREAST CANCER
     Dosage: 2.5 MILLIGRAM, QD
  4. EUTHYROX [Concomitant]
     Active Substance: LEVOTHYROXINE SODIUM
     Indication: AUTOIMMUNE THYROIDITIS
  5. EUTHYROX [Concomitant]
     Active Substance: LEVOTHYROXINE SODIUM
     Indication: HYPOTHYROIDISM
     Dosage: 50 MICROGRAM, QD
  6. CALCIUM [Concomitant]
     Active Substance: CALCIUM
     Dosage: UNK

REACTIONS (10)
  - Impaired healing [Not Recovered/Not Resolved]
  - Autoimmune thyroiditis [Unknown]
  - Metastases to bone [Unknown]
  - Cardiac aneurysm [Unknown]
  - Spinal stenosis [Unknown]
  - Intervertebral disc protrusion [Unknown]
  - Postoperative wound infection [Unknown]
  - Odontogenic cyst [Unknown]
  - Post procedural fever [Recovering/Resolving]
  - Osteonecrosis of jaw [Unknown]

NARRATIVE: CASE EVENT DATE: 20180129
